FAERS Safety Report 5331560-4 (Version None)
Quarter: 2007Q2

REPORT INFORMATION
  Report Type: 
  Country: None (occurrence: None)
  Receive Date: 20070522
  Receipt Date: 20070507
  Transmission Date: 20071010
  Serious: Yes (Death, Hospitalization, Other)
  Sender: FDA-Public Use
  Company Number: RU-SHR-RU-2007-016034

PATIENT
  Age: 26 Year
  Sex: Male
  Weight: 72 kg

DRUGS (3)
  1. BETASERON [Suspect]
     Indication: MULTIPLE SCLEROSIS
     Dosage: UNK, UNK
     Route: 058
     Dates: start: 20060303, end: 20070116
  2. THIOCTACID [Concomitant]
  3. ALCOHOL [Suspect]

REACTIONS (15)
  - ALCOHOL POISONING [None]
  - CARDIAC ARREST [None]
  - CEREBRAL HAEMORRHAGE [None]
  - CLONIC CONVULSION [None]
  - COMPLETED SUICIDE [None]
  - DEPRESSION SUICIDAL [None]
  - DISSEMINATED INTRAVASCULAR COAGULATION [None]
  - DRUG TOXICITY [None]
  - ENCEPHALOPATHY [None]
  - GASTRIC ULCER HAEMORRHAGE [None]
  - MULTI-ORGAN FAILURE [None]
  - PNEUMONIA [None]
  - SEPSIS [None]
  - SKIN HAEMORRHAGE [None]
  - STATUS EPILEPTICUS [None]
